FAERS Safety Report 13338763 (Version 1)
Quarter: 2017Q1

REPORT INFORMATION
  Report Type: Spontaneous
  Country: FR (occurrence: FR)
  Receive Date: 20170315
  Receipt Date: 20170315
  Transmission Date: 20170428
  Serious: Yes (Other)
  Sender: FDA-Public Use
  Company Number: FR-SA-2017SA038826

PATIENT
  Sex: Female

DRUGS (1)
  1. CEREZYME [Suspect]
     Active Substance: IMIGLUCERASE
     Route: 042
     Dates: start: 201606

REACTIONS (2)
  - Abdominal pain [Not Recovered/Not Resolved]
  - Appendicitis [Unknown]

NARRATIVE: CASE EVENT DATE: 2016
